FAERS Safety Report 8020013-0 (Version None)
Quarter: 2012Q1

REPORT INFORMATION
  Report Type: 
  Country: None (occurrence: None)
  Receive Date: 20120103
  Receipt Date: 20111228
  Transmission Date: 20120608
  Serious: Yes (Life-Threatening, Hospitalization, Other)
  Sender: FDA-Public Use
  Company Number: PHHY2011HR112936

PATIENT
  Age: 8 Month
  Sex: Male

DRUGS (1)
  1. PROPRANOLOL [Suspect]
     Indication: HAEMANGIOMA
     Dosage: 5 MG, QD
     Route: 048
     Dates: start: 20110601

REACTIONS (5)
  - COLD SWEAT [None]
  - HYPOGLYCAEMIA [None]
  - EXCESSIVE OCULAR CONVERGENCE [None]
  - HYPERHIDROSIS [None]
  - UNRESPONSIVE TO STIMULI [None]
